FAERS Safety Report 4842405-0 (Version None)
Quarter: 2005Q4

REPORT INFORMATION
  Report Type: 
  Country: None (occurrence: None)
  Receive Date: 20051201
  Receipt Date: 20051011
  Transmission Date: 20060501
  Serious: Yes (Death)
  Sender: FDA-Public Use
  Company Number: US-BRISTOL-MYERS SQUIBB COMPANY-13140660

PATIENT
  Age: 82 Year
  Sex: Female

DRUGS (7)
  1. MEGACE [Suspect]
     Indication: ANOREXIA
     Route: 048
     Dates: start: 20050107, end: 20050901
  2. LISINOPRIL [Concomitant]
  3. PRILOSEC [Concomitant]
  4. FUROSEMIDE [Concomitant]
  5. FOLIC ACID [Concomitant]
  6. CILOSTAZOL [Concomitant]
  7. KLOR-CON [Concomitant]

REACTIONS (1)
  - DEATH [None]
